FAERS Safety Report 8839615 (Version 2)
Quarter: 2018Q3

REPORT INFORMATION
  Report Type: Report from Study
  Country: AU (occurrence: AU)
  Receive Date: 20121015
  Receipt Date: 20180926
  Transmission Date: 20181010
  Serious: Yes (Other)
  Sender: FDA-Public Use
  Company Number: PHHY2012AU090322

PATIENT
  Sex: Female

DRUGS (3)
  1. DASATINIB. [Suspect]
     Active Substance: DASATINIB
     Indication: CHRONIC MYELOID LEUKAEMIA
     Route: 065
  2. TASIGNA [Suspect]
     Active Substance: NILOTINIB
     Indication: CHRONIC MYELOID LEUKAEMIA
     Dosage: 400 MG, BID
     Route: 048
     Dates: start: 2005, end: 201205
  3. GLIVEC [Suspect]
     Active Substance: IMATINIB MESYLATE
     Indication: CHRONIC MYELOID LEUKAEMIA
     Dosage: UNK
     Route: 065
     Dates: start: 20010618

REACTIONS (7)
  - Cerebrovascular accident [Not Recovered/Not Resolved]
  - Pulmonary hypertension [Unknown]
  - Peripheral vascular disorder [Unknown]
  - Gene mutation [Unknown]
  - Pleural effusion [Unknown]
  - Speech disorder [Not Recovered/Not Resolved]
  - Embolic stroke [Unknown]

NARRATIVE: CASE EVENT DATE: 2010
